FAERS Safety Report 9990711 (Version 1)
Quarter: 2014Q1

REPORT INFORMATION
  Report Type: Spontaneous
  Country: US (occurrence: None)
  Receive Date: 20140307
  Receipt Date: 20140307
  Transmission Date: 20141002
  Serious: Yes (Hospitalization)
  Sender: FDA-Public Use
  Company Number: None

PATIENT
  Age: 61 Year
  Sex: Male
  Weight: 97.7 kg

DRUGS (2)
  1. ACETAMINOPHEN/BUTALBITAL [Suspect]
     Indication: MIGRAINE
     Route: 048
     Dates: start: 20120529, end: 20131019
  2. ACETAMINOPHEN/HYDROCODONE [Suspect]
     Indication: PAIN
     Dosage: 1 TAB
     Route: 048
     Dates: start: 20120814, end: 20120913

REACTIONS (9)
  - Fall [None]
  - Somnolence [None]
  - Influenza [None]
  - Acute myocardial infarction [None]
  - Ventricular fibrillation [None]
  - Cardiac arrest [None]
  - Post procedural complication [None]
  - Mental status changes [None]
  - Toxicologic test abnormal [None]
